FAERS Safety Report 12140194 (Version 1)
Quarter: 2016Q1

REPORT INFORMATION
  Report Type: Spontaneous
  Country: IE (occurrence: IE)
  Receive Date: 20160303
  Receipt Date: 20160303
  Transmission Date: 20160526
  Serious: Yes (Other)
  Sender: FDA-Public Use
  Company Number: ALCN2016IE001621

PATIENT
  Age: 52 Year
  Sex: Female

DRUGS (2)
  1. MOXIFLOXACIN. [Suspect]
     Active Substance: MOXIFLOXACIN
     Indication: CORNEAL INFILTRATES
     Dosage: 1 DF, QID
     Route: 047
  2. MOXIFLOXACIN. [Suspect]
     Active Substance: MOXIFLOXACIN
     Indication: EYE PAIN

REACTIONS (2)
  - Ulcerative keratitis [Recovered/Resolved with Sequelae]
  - Corneal flap complication [Recovered/Resolved with Sequelae]
